FAERS Safety Report 10559957 (Version 1)
Quarter: 2014Q4

REPORT INFORMATION
  Report Type: Spontaneous
  Country: US (occurrence: US)
  Receive Date: 20141103
  Receipt Date: 20141103
  Transmission Date: 20150529
  Serious: No
  Sender: FDA-Public Use
  Company Number: US-AMGEN-USASP2014083253

PATIENT
  Age: 53 Year
  Sex: Female

DRUGS (2)
  1. METHOTREXATE [Concomitant]
     Active Substance: METHOTREXATE
     Dosage: UNK
  2. ENBREL [Suspect]
     Active Substance: ETANERCEPT
     Indication: RHEUMATOID ARTHRITIS
     Dosage: 50 MG, QWK
     Route: 065
     Dates: start: 200908

REACTIONS (9)
  - Fall [Recovered/Resolved]
  - Pleuritic pain [Recovered/Resolved]
  - Nasopharyngitis [Not Recovered/Not Resolved]
  - Stress [Not Recovered/Not Resolved]
  - Episcleritis [Recovered/Resolved]
  - Skin abrasion [Recovered/Resolved]
  - Sinusitis [Not Recovered/Not Resolved]
  - Depression [Not Recovered/Not Resolved]
  - Wound secretion [Recovered/Resolved]

NARRATIVE: CASE EVENT DATE: 2012
